FAERS Safety Report 9803006 (Version 1)
Quarter: 2014Q1

REPORT INFORMATION
  Report Type: Spontaneous
  Country: US (occurrence: None)
  Receive Date: 20140106
  Receipt Date: 20140106
  Transmission Date: 20141002
  Serious: Yes (Other)
  Sender: FDA-Public Use
  Company Number: None

PATIENT
  Age: 67 Year
  Sex: Female
  Weight: 95.26 kg

DRUGS (7)
  1. CLINDAMYCIN HCL [Suspect]
     Indication: INFECTION
     Dates: start: 20131010, end: 20131010
  2. LASIX [Concomitant]
  3. ENAPARIL [Concomitant]
  4. XALATAN [Concomitant]
  5. CALCIUM + MINERALS [Concomitant]
  6. CENTRUM VITAMINS [Concomitant]
  7. LOW DOSE ASPIRIN [Concomitant]

REACTIONS (3)
  - Dysgeusia [None]
  - Neck pain [None]
  - Headache [None]
